FAERS Safety Report 14929835 (Version 1)
Quarter: 2018Q2

REPORT INFORMATION
  Report Type: Spontaneous
  Country: DE (occurrence: DE)
  Receive Date: 20180523
  Receipt Date: 20180523
  Transmission Date: 20180711
  Serious: Yes (Other)
  Sender: FDA-Public Use
  Company Number: DE-LEXICON PHARMACEUTICALS, INC-18-1606-00632

PATIENT
  Sex: Male

DRUGS (2)
  1. SOMATULINE AUTOGEL [Concomitant]
     Active Substance: LANREOTIDE ACETATE
     Indication: CARCINOID TUMOUR
  2. TELOTRISTAT ETHYL [Suspect]
     Active Substance: TELOTRISTAT ETHYL
     Indication: CARCINOID TUMOUR
     Dosage: XERMELO WAS DISCONTINUED AFTER ONE WEEK OF THERAPY

REACTIONS (1)
  - Cluster headache [Unknown]
